FAERS Safety Report 6451123-7 (Version None)
Quarter: 2009Q4

REPORT INFORMATION
  Report Type: 
  Country: None (occurrence: None)
  Receive Date: 20091123
  Receipt Date: 20091112
  Transmission Date: 20100525
  Serious: Yes (Other)
  Sender: FDA-Public Use
  Company Number: AU-PFIZER INC-2009297066

PATIENT
  Sex: Male

DRUGS (3)
  1. LIPITOR [Suspect]
     Dosage: UNK
  2. SIGMACORT [Concomitant]
     Dosage: UNK
  3. VITAMIN D [Concomitant]
     Dosage: UNK

REACTIONS (2)
  - PERIORBITAL OEDEMA [None]
  - URTICARIA [None]
